FAERS Safety Report 8596331-4 (Version None)
Quarter: 2012Q3

REPORT INFORMATION
  Report Type: 
  Country: None (occurrence: None)
  Receive Date: 20120815
  Receipt Date: 20120808
  Transmission Date: 20120928
  Serious: Yes (Other)
  Sender: FDA-Public Use
  Company Number: JP-ELI_LILLY_AND_COMPANY-JP201106008438

PATIENT
  Age: 75 Year
  Sex: Female

DRUGS (6)
  1. FORTEO [Suspect]
     Indication: OSTEOPOROSIS
     Dosage: UNK
     Route: 058
     Dates: start: 20110201, end: 20110401
  2. CARTOL [Concomitant]
     Route: 048
  3. MENATETRENONE [Concomitant]
     Route: 048
  4. BISPHOSPHONATES [Concomitant]
     Route: 048
  5. ASPARA-CA [Concomitant]
     Route: 048
  6. FORTEO [Suspect]
     Dosage: UNK
     Route: 058
     Dates: start: 20110626

REACTIONS (5)
  - HEADACHE [None]
  - WHITE BLOOD CELL COUNT INCREASED [None]
  - COMPRESSION FRACTURE [None]
  - PELVIC PAIN [None]
  - BACK DISORDER [None]
